FAERS Safety Report 13443178 (Version 2)
Quarter: 2017Q2

REPORT INFORMATION
  Report Type: Spontaneous
  Country: JP (occurrence: JP)
  Receive Date: 20170414
  Receipt Date: 20170503
  Transmission Date: 20170830
  Serious: Yes (Other)
  Sender: FDA-Public Use
  Company Number: JP-AMGEN-JPNSP2017056505

PATIENT
  Age: 69 Year
  Sex: Female

DRUGS (2)
  1. KYPROLIS [Suspect]
     Active Substance: CARFILZOMIB
     Indication: PLASMA CELL MYELOMA
     Dosage: 20 MG/M2, QD
     Route: 041
     Dates: start: 20170329, end: 20170330
  2. KYPROLIS [Suspect]
     Active Substance: CARFILZOMIB
     Dosage: 15 MG/M2, UNK
     Route: 041
     Dates: start: 20170411, end: 20170412

REACTIONS (4)
  - Haemolysis [Not Recovered/Not Resolved]
  - Cardiac failure [Recovered/Resolved]
  - Bone marrow failure [Not Recovered/Not Resolved]
  - Blood lactate dehydrogenase increased [Not Recovered/Not Resolved]

NARRATIVE: CASE EVENT DATE: 20170330
